FAERS Safety Report 10540781 (Version 2)
Quarter: 2014Q4

REPORT INFORMATION
  Report Type: Report from Study
  Country: US (occurrence: US)
  Receive Date: 20141024
  Receipt Date: 20141024
  Transmission Date: 20150529
  Serious: Yes (Hospitalization)
  Sender: FDA-Public Use
  Company Number: US-009507513-0908USA02873

PATIENT
  Age: 69 Year
  Sex: Male
  Weight: 81.1 kg

DRUGS (16)
  1. LASIX [Suspect]
     Active Substance: FUROSEMIDE
  2. TOPROL XL [Suspect]
     Active Substance: METOPROLOL SUCCINATE
  3. FLOMAX [Suspect]
     Active Substance: TAMSULOSIN HYDROCHLORIDE
  4. NEXIUM [Concomitant]
     Active Substance: ESOMEPRAZOLE MAGNESIUM
  5. MICARDIS [Suspect]
     Active Substance: TELMISARTAN
  6. ENBREL [Concomitant]
     Active Substance: ETANERCEPT
  7. GLIPIZIDE. [Concomitant]
     Active Substance: GLIPIZIDE
  8. LIPITOR [Concomitant]
     Active Substance: ATORVASTATIN CALCIUM
  9. METFORMIN [Concomitant]
     Active Substance: METFORMIN HYDROCHLORIDE
     Route: 048
  10. COZAAR [Suspect]
     Active Substance: LOSARTAN POTASSIUM
     Route: 048
  11. STUDY DRUG (UNSPECIFIED) [Suspect]
     Active Substance: UNSPECIFIED INGREDIENT
     Dosage: UNK
     Dates: start: 20061213, end: 20070101
  12. AMBIEN [Concomitant]
     Active Substance: ZOLPIDEM TARTRATE
  13. PREDNISONE. [Concomitant]
     Active Substance: PREDNISONE
  14. CLONIDINE. [Suspect]
     Active Substance: CLONIDINE
  15. HYDROCODONE [Concomitant]
     Active Substance: HYDROCODONE
  16. LEXAPRO [Concomitant]
     Active Substance: ESCITALOPRAM OXALATE

REACTIONS (6)
  - Headache [Unknown]
  - Mucosal inflammation [Unknown]
  - Hypertension [Unknown]
  - Fatigue [Unknown]
  - Stomatitis [Unknown]
  - Hypotension [Unknown]

NARRATIVE: CASE EVENT DATE: 20061220
